FAERS Safety Report 9219688 (Version 1)
Quarter: 2013Q1

REPORT INFORMATION
  Report Type: Spontaneous
  Country: US (occurrence: None)
  Receive Date: 20120830
  Receipt Date: 20120830
  Transmission Date: 20140127
  Serious: Yes (Other)
  Sender: FDA-Public Use
  Company Number: PHEH2012US011145

PATIENT
  Age: 67 Year
  Sex: Male

DRUGS (7)
  1. EXFORGE (VALSARTAN, AMLODIPINE) UNKNOWN [Suspect]
     Indication: BLOOD PRESSURE
     Dosage: 1 DF (320/10/25MG)
     Route: 048
  2. CARVEDILOL (CARVEDILOL) [Concomitant]
  3. GLYBURIDE (GLIBENCLAMIDE) [Concomitant]
  4. ALLOPURINOL [Concomitant]
  5. CRESTOR (ROSUVASTATIN CALCIUM) [Concomitant]
  6. VITAMIN D (ERGOCALCIFEROL) [Concomitant]
  7. ASPIRIN (ACETYLSALICYCLIC ACID TABLET) [Concomitant]

REACTIONS (2)
  - Diabetes mellitus [None]
  - Gout [None]
